FAERS Safety Report 13528763 (Version 1)
Quarter: 2017Q2

REPORT INFORMATION
  Report Type: Spontaneous
  Country: US (occurrence: US)
  Receive Date: 20170509
  Receipt Date: 20170509
  Transmission Date: 20170830
  Serious: No
  Sender: FDA-Public Use
  Company Number: US-UCBSA-2016039259

PATIENT
  Age: 33 Year
  Sex: Male

DRUGS (5)
  1. BRIVIACT [Suspect]
     Active Substance: BRIVARACETAM
     Dosage: 50 MG, 2X/DAY (BID)
     Dates: start: 2016, end: 2016
  2. ALPRAZOLAM. [Concomitant]
     Active Substance: ALPRAZOLAM
     Indication: ANXIETY
  3. LAMOTRIGINE. [Concomitant]
     Active Substance: LAMOTRIGINE
     Indication: SEIZURE
  4. BRIVIACT [Suspect]
     Active Substance: BRIVARACETAM
     Dosage: 100 MG, 2X/DAY (BID)
     Dates: start: 2016, end: 2016
  5. BRIVIACT [Suspect]
     Active Substance: BRIVARACETAM
     Indication: SEIZURE
     Dosage: 25 MG, 2X/DAY (BID)
     Dates: start: 201606, end: 2016

REACTIONS (1)
  - Fatigue [Unknown]

NARRATIVE: CASE EVENT DATE: 2016
